FAERS Safety Report 7881834-8 (Version None)
Quarter: 2011Q4

REPORT INFORMATION
  Report Type: 
  Country: None (occurrence: None)
  Receive Date: 20111101
  Receipt Date: 20110531
  Transmission Date: 20120403
  Serious: No
  Sender: FDA-Public Use
  Company Number: US-AMGEN-USASP2011027991

PATIENT
  Age: 59 Year
  Sex: Female
  Weight: 90.703 kg

DRUGS (5)
  1. OSCAL                              /00108001/ [Concomitant]
     Route: 048
  2. ENBREL [Suspect]
     Indication: PRODUCT USED FOR UNKNOWN INDICATION
     Dosage: 50 MG, QWK
     Route: 058
  3. VITAMIN B COMPLEX CAP [Concomitant]
     Route: 048
  4. SECTRAL [Concomitant]
     Dosage: 200 MG, UNK
     Route: 048
  5. MULTIVITAMIN                       /00097801/ [Concomitant]
     Route: 048

REACTIONS (3)
  - INJECTION SITE ERYTHEMA [None]
  - INJECTION SITE PAIN [None]
  - INJECTION SITE SWELLING [None]
